FAERS Safety Report 23460315 (Version 2)
Quarter: 2024Q2

REPORT INFORMATION
  Report Type: Other
  Country: ES (occurrence: None)
  Receive Date: 20240131
  Receipt Date: 20240415
  Transmission Date: 20240716
  Serious: Yes (Hospitalization)
  Sender: FDA-Public Use
  Company Number: ES-ROCHE-3498401

PATIENT
  Age: 53 Year
  Sex: Female
  Weight: 72.5 kg

DRUGS (17)
  1. ATEZOLIZUMAB [Suspect]
     Active Substance: ATEZOLIZUMAB
     Indication: Small cell lung cancer extensive stage
     Dosage: START DATE OF MOST RECENT DOSE OF ATEZOLIZUMAB PRIOR TO AE AND SAE: 29/NOV/2023?LAST DOSE OF ATEZOLI
     Route: 041
     Dates: start: 20220622
  2. ETOPOSIDE [Suspect]
     Active Substance: ETOPOSIDE
     Indication: Small cell lung cancer extensive stage
     Route: 042
     Dates: start: 20220620
  3. CARBOPLATIN [Suspect]
     Active Substance: CARBOPLATIN
     Indication: Small cell lung cancer extensive stage
     Route: 065
     Dates: start: 20220622
  4. CYANOCOBALAMIN [Concomitant]
     Active Substance: CYANOCOBALAMIN
     Dates: start: 20220511
  5. CODEINE [Concomitant]
     Active Substance: CODEINE
     Dates: start: 20220511
  6. DIAZEPAM [Concomitant]
     Active Substance: DIAZEPAM
     Dates: start: 20220511
  7. IBUPROFEN [Concomitant]
     Active Substance: IBUPROFEN
     Dates: start: 20220511
  8. IBUPROFEN [Concomitant]
     Active Substance: IBUPROFEN
     Dates: start: 20230215
  9. PANTOPRAZOLE SODIUM [Concomitant]
     Active Substance: PANTOPRAZOLE SODIUM
     Dates: start: 20220511
  10. ACETAMINOPHEN [Concomitant]
     Active Substance: ACETAMINOPHEN
     Dates: start: 20220511
  11. ACETAMINOPHEN [Concomitant]
     Active Substance: ACETAMINOPHEN
     Dates: start: 20230215
  12. TRAMADOL HYDROCHLORIDE [Concomitant]
     Active Substance: TRAMADOL HYDROCHLORIDE
     Dates: start: 20220511
  13. ESCITALOPRAM [Concomitant]
     Active Substance: ESCITALOPRAM OXALATE
     Dates: start: 20130923
  14. ZOLPIDEM [Concomitant]
     Active Substance: ZOLPIDEM TARTRATE
     Dates: start: 20221011
  15. MOTILIUM [Concomitant]
     Active Substance: DOMPERIDONE
     Dates: start: 20220511
  16. LOPERAMIDE HYDROCHLORIDE [Concomitant]
     Active Substance: LOPERAMIDE HYDROCHLORIDE
     Dates: start: 20230801
  17. LEVOTHYROXINE [Concomitant]
     Active Substance: LEVOTHYROXINE\LEVOTHYROXINE SODIUM
     Dates: start: 20230419

REACTIONS (1)
  - Pyrexia [Recovered/Resolved]

NARRATIVE: CASE EVENT DATE: 20231210
